FAERS Safety Report 11055909 (Version 1)
Quarter: 2015Q2

REPORT INFORMATION
  Report Type: Spontaneous
  Country: None (occurrence: None)
  Receive Date: 20150421
  Receipt Date: 20150421
  Transmission Date: 20150821
  Serious: Yes (Hospitalization)
  Sender: FDA-Public Use
  Company Number: None

PATIENT
  Age: 17 Year
  Sex: Male

DRUGS (15)
  1. BUPIVACAINE [Concomitant]
     Active Substance: BUPIVACAINE
  2. KETOROLAC [Concomitant]
     Active Substance: KETOROLAC\KETOROLAC TROMETHAMINE
  3. MEPERIDINE [Concomitant]
     Active Substance: MEPERIDINE
  4. DIAZEPAM. [Concomitant]
     Active Substance: DIAZEPAM
  5. FENTANYL. [Concomitant]
     Active Substance: FENTANYL
  6. DIPHENHYDRAMINE [Concomitant]
     Active Substance: DIPHENHYDRAMINE
  7. MIDAZOLAM [Concomitant]
     Active Substance: MIDAZOLAM\MIDAZOLAM HYDROCHLORIDE
  8. ONDANSETRON [Concomitant]
     Active Substance: ONDANSETRON
  9. HYDROMORPHONE [Concomitant]
     Active Substance: HYDROMORPHONE
  10. SUCCINYLCHOLINE [Concomitant]
     Active Substance: SUCCINYLCHOLINE
  11. PROMETHAZINE [Concomitant]
     Active Substance: PROMETHAZINE\PROMETHAZINE HYDROCHLORIDE
  12. PROPOFOL. [Concomitant]
     Active Substance: PROPOFOL
  13. ZOFRAN [Suspect]
     Active Substance: ONDANSETRON HYDROCHLORIDE
     Indication: NAUSEA
     Route: 042
  14. CEFAZOLIN [Concomitant]
     Active Substance: CEFAZOLIN
  15. METOPROLOL [Concomitant]
     Active Substance: METOPROLOL

REACTIONS (1)
  - Tremor [None]

NARRATIVE: CASE EVENT DATE: 20150415
